FAERS Safety Report 20032355 (Version 1)
Quarter: 2021Q4

REPORT INFORMATION
  Report Type: Spontaneous
  Country: US (occurrence: US)
  Receive Date: 20211103
  Receipt Date: 20211103
  Transmission Date: 20220303
  Serious: No
  Sender: FDA-Public Use
  Company Number: US-ALLERGAN-2120987US

PATIENT
  Sex: Female
  Weight: 72.57 kg

DRUGS (1)
  1. VRAYLAR [Suspect]
     Active Substance: CARIPRAZINE
     Indication: Bipolar disorder
     Dosage: 6 MG, QD
     Dates: start: 20200506, end: 20201021

REACTIONS (1)
  - Drug ineffective [Unknown]
